FAERS Safety Report 4777496-9 (Version None)
Quarter: 2005Q3

REPORT INFORMATION
  Report Type: 
  Country: None (occurrence: None)
  Receive Date: 20050923
  Receipt Date: 20050818
  Transmission Date: 20060218
  Serious: Yes (Other)
  Sender: FDA-Public Use
  Company Number: US-AMGEN-US146980

PATIENT
  Sex: Female

DRUGS (2)
  1. ENBREL [Suspect]
     Indication: PUSTULAR PSORIASIS
     Dates: start: 20040801
  2. NEORAL [Concomitant]

REACTIONS (6)
  - CONDITION AGGRAVATED [None]
  - CONTUSION [None]
  - EPISTAXIS [None]
  - PSORIASIS [None]
  - SPLENOMEGALY [None]
  - THROMBOCYTOPENIA [None]
